FAERS Safety Report 7006534-8 (Version None)
Quarter: 2010Q3

REPORT INFORMATION
  Report Type: 
  Country: None (occurrence: None)
  Receive Date: 20100921
  Receipt Date: 20100921
  Transmission Date: 20110219
  Serious: Yes (Other)
  Sender: FDA-Public Use
  Company Number: None

PATIENT
  Age: 37 Year
  Sex: Female
  Weight: 58.9676 kg

DRUGS (1)
  1. MICONAZOLE [Suspect]
     Indication: FUNGAL INFECTION
     Dosage: 1200MG 1 VAG
     Route: 067
     Dates: start: 20100915, end: 20100915

REACTIONS (3)
  - VULVOVAGINAL BURNING SENSATION [None]
  - VULVOVAGINAL PAIN [None]
  - VULVOVAGINAL PRURITUS [None]
